FAERS Safety Report 23294648 (Version 1)
Quarter: 2023Q4

REPORT INFORMATION
  Report Type: Spontaneous
  Country: US (occurrence: US)
  Receive Date: 20231213
  Receipt Date: 20231213
  Transmission Date: 20240110
  Serious: Yes (Hospitalization, Other)
  Sender: FDA-Public Use
  Company Number: US-ANIPHARMA-2023-US-042463

PATIENT
  Age: 68 Year
  Sex: Female
  Weight: 108.86 kg

DRUGS (1)
  1. CORTICOTROPIN [Suspect]
     Active Substance: CORTICOTROPIN
     Indication: Rheumatoid arthritis
     Dosage: INJECT 80 UNITS (1ML) SUBCUTANEOUSLY TWO TIMES A WEEK AS DIRECTED.
     Route: 058
     Dates: start: 202311

REACTIONS (2)
  - Cervical vertebral fracture [Unknown]
  - Fall [Unknown]
